FAERS Safety Report 4835269-2 (Version None)
Quarter: 2005Q4

REPORT INFORMATION
  Report Type: 
  Country: None (occurrence: None)
  Receive Date: 20051114
  Receipt Date: 20050930
  Transmission Date: 20060501
  Serious: Yes (Death)
  Sender: FDA-Public Use
  Company Number: 2005AL004140

PATIENT
  Age: 63 Year

DRUGS (2)
  1. ALPRAZOLAM [Suspect]
     Dosage: PO
     Route: 048
  2. ETHANOL [Suspect]
     Dosage: PO
     Route: 048

REACTIONS (6)
  - ALCOHOL USE [None]
  - CARDIAC ARREST [None]
  - COMPLETED SUICIDE [None]
  - INTENTIONAL DRUG MISUSE [None]
  - OVERDOSE [None]
  - RESPIRATORY ARREST [None]
